FAERS Safety Report 10261059 (Version 2)
Quarter: 2014Q3

REPORT INFORMATION
  Report Type: Spontaneous
  Country: GR (occurrence: GR)
  Receive Date: 20140626
  Receipt Date: 20140715
  Transmission Date: 20150326
  Serious: Yes (Hospitalization)
  Sender: FDA-Public Use
  Company Number: GR-SHIRE-GR201403110

PATIENT
  Age: 88 Year
  Sex: Female

DRUGS (14)
  1. XAGRID [Suspect]
     Active Substance: ANAGRELIDE HYDROCHLORIDE
     Dosage: 2 MG, 1X/DAY:QD
     Route: 048
     Dates: start: 2014
  2. LOPRESSOR [Concomitant]
     Active Substance: METOPROLOL TARTRATE
     Indication: PRODUCT USED FOR UNKNOWN INDICATION
     Dosage: UNK, UNKNOWN
     Route: 065
  3. LANTUS [Concomitant]
     Active Substance: INSULIN GLARGINE
     Indication: PRODUCT USED FOR UNKNOWN INDICATION
     Dosage: UNK, UNKNOWN
     Route: 065
  4. XAGRID [Suspect]
     Active Substance: ANAGRELIDE HYDROCHLORIDE
     Dosage: 0.5 MG, 1X/DAY:QD
     Route: 048
     Dates: start: 20130404, end: 201304
  5. SALOSPIR [Concomitant]
     Active Substance: ASPIRIN\CAFFEINE
     Indication: PRODUCT USED FOR UNKNOWN INDICATION
     Dosage: UNK, UNKNOWN
     Route: 065
  6. AMLOPEN [Concomitant]
     Indication: PRODUCT USED FOR UNKNOWN INDICATION
     Dosage: UNK, UNKNOWN
     Route: 065
  7. ONEALFA [Concomitant]
     Active Substance: ALFACALCIDOL
     Indication: PRODUCT USED FOR UNKNOWN INDICATION
     Dosage: UNK, UNKNOWN
     Route: 065
  8. XAGRID [Suspect]
     Active Substance: ANAGRELIDE HYDROCHLORIDE
     Dosage: 1 MG, 1X/DAY:QD
     Route: 048
     Dates: start: 201304, end: 201305
  9. XAGRID [Suspect]
     Active Substance: ANAGRELIDE HYDROCHLORIDE
     Dosage: 1.5 MG, 1X/DAY:QD
     Route: 048
     Dates: start: 2013, end: 2013
  10. LASIX [Concomitant]
     Active Substance: FUROSEMIDE
     Indication: PRODUCT USED FOR UNKNOWN INDICATION
     Dosage: UNK, UNKNOWN
     Route: 065
  11. THYROXINE [Concomitant]
     Active Substance: LEVOTHYROXINE
     Indication: PRODUCT USED FOR UNKNOWN INDICATION
     Dosage: UNK, UNKNOWN
     Route: 065
  12. LADOSE [Concomitant]
     Active Substance: FLUOXETINE HYDROCHLORIDE
     Indication: PRODUCT USED FOR UNKNOWN INDICATION
     Dosage: UNK, UNKNOWN
     Route: 065
  13. XAGRID [Suspect]
     Active Substance: ANAGRELIDE HYDROCHLORIDE
     Indication: ESSENTIAL THROMBOCYTHAEMIA
     Dosage: 2 MG, 1X/DAY:QD
     Route: 048
     Dates: start: 20130404, end: 20140616
  14. NEXIUM                             /01479303/ [Concomitant]
     Indication: PRODUCT USED FOR UNKNOWN INDICATION
     Dosage: UNK, UNKNOWN
     Route: 065

REACTIONS (2)
  - Syncope [Recovering/Resolving]
  - Atrioventricular block complete [Recovering/Resolving]

NARRATIVE: CASE EVENT DATE: 20140616
